FAERS Safety Report 4509854-1 (Version None)
Quarter: 2004Q4

REPORT INFORMATION
  Report Type: 
  Country: None (occurrence: None)
  Receive Date: 20041119
  Receipt Date: 20041103
  Transmission Date: 20050328
  Serious: Yes (Hospitalization)
  Sender: FDA-Public Use
  Company Number: 9229

PATIENT
  Age: 76 Year
  Sex: Male
  Weight: 58 kg

DRUGS (3)
  1. DAUNORUBICIN [Suspect]
     Indication: ACUTE MYELOID LEUKAEMIA
     Dosage: 45 MG.M2 DAILY IV
     Route: 042
     Dates: start: 20040810
  2. CYTARABINE [Suspect]
     Indication: ACUTE MYELOID LEUKAEMIA
     Dosage: 100 MG/M2 DAILY IV
     Route: 042
     Dates: start: 20040810
  3. MDR - INTRAVENOUS FORMULATION [Suspect]
     Indication: ACUTE MYELOID LEUKAEMIA
     Dosage: 550 MG DAILY IV
     Route: 042
     Dates: start: 20040810

REACTIONS (5)
  - DYSPHAGIA [None]
  - NASOPHARYNGEAL DISORDER [None]
  - NEUROPATHY [None]
  - NEUTROPHIL COUNT DECREASED [None]
  - PARESIS [None]
